FAERS Safety Report 4398629-2 (Version None)
Quarter: 2004Q3

REPORT INFORMATION
  Report Type: 
  Country: None (occurrence: None)
  Receive Date: 20040712
  Receipt Date: 20040625
  Transmission Date: 20050211
  Serious: Yes (Hospitalization)
  Sender: FDA-Public Use
  Company Number: 2003AP03859

PATIENT
  Age: 68 Year
  Sex: Male

DRUGS (7)
  1. IRESSA [Suspect]
     Indication: LUNG SQUAMOUS CELL CARCINOMA STAGE UNSPECIFIED
     Dosage: 250 MG DAILY PO
     Route: 048
     Dates: start: 20030930, end: 20031013
  2. IRESSA [Suspect]
     Indication: NON-SMALL CELL LUNG CANCER
     Dosage: 250 MG DAILY PO
     Route: 048
     Dates: start: 20030930, end: 20031013
  3. AMLODIN [Concomitant]
  4. DETANTOL R [Concomitant]
  5. NAVELBINE [Concomitant]
  6. BRIPLATIN [Concomitant]
  7. RADIATION THERAPY [Concomitant]

REACTIONS (3)
  - ATELECTASIS [None]
  - INTERSTITIAL LUNG DISEASE [None]
  - PNEUMONIA [None]
